FAERS Safety Report 8285424 (Version 4)
Quarter: 2013Q2

REPORT INFORMATION
  Report Type: Spontaneous
  Country: US (occurrence: US)
  Receive Date: 20111213
  Receipt Date: 20130404
  Transmission Date: 20140414
  Serious: Yes (Hospitalization, Congenital Anomaly)
  Sender: FDA-Public Use
  Company Number: US-JNJFOC-20111203502

PATIENT
  Sex: Male

DRUGS (2)
  1. TOPAMAX [Suspect]
     Indication: FOETAL EXPOSURE DURING PREGNANCY
     Route: 064
     Dates: start: 2005, end: 2007
  2. RHOGAM [Suspect]
     Indication: FOETAL EXPOSURE DURING PREGNANCY
     Route: 064

REACTIONS (5)
  - Jaundice [Unknown]
  - Musculoskeletal disorder [Unknown]
  - Neuromyopathy [Unknown]
  - Talipes [Unknown]
  - Anxiety [Unknown]
